FAERS Safety Report 10488672 (Version 3)
Quarter: 2015Q1

REPORT INFORMATION
  Report Type: Report from Study
  Country: US (occurrence: US)
  Receive Date: 20141002
  Receipt Date: 20150326
  Transmission Date: 20150720
  Serious: Yes (Life-Threatening)
  Sender: FDA-Public Use
  Company Number: US-JNJFOC-20140919106

PATIENT
  Age: 61 Year
  Sex: Male
  Weight: 168.5 kg

DRUGS (21)
  1. DETROL LA [Concomitant]
     Active Substance: TOLTERODINE TARTRATE
     Indication: HYPERTONIC BLADDER
     Route: 048
     Dates: start: 1998, end: 20101107
  2. CILOSTAZOL. [Concomitant]
     Active Substance: CILOSTAZOL
     Indication: INTERMITTENT CLAUDICATION
     Route: 048
     Dates: start: 20121211
  3. CARDURA [Concomitant]
     Active Substance: DOXAZOSIN MESYLATE
     Indication: HYPERTONIC BLADDER
     Route: 048
     Dates: start: 20140902
  4. BABY ASPIRIN [Concomitant]
     Active Substance: ASPIRIN
     Indication: CARDIOVASCULAR EVENT PROPHYLAXIS
     Route: 048
     Dates: start: 20110907
  5. CILOSTAZOL. [Concomitant]
     Active Substance: CILOSTAZOL
     Indication: INTERMITTENT CLAUDICATION
     Route: 048
     Dates: start: 2005, end: 20110816
  6. DETROL LA [Concomitant]
     Active Substance: TOLTERODINE TARTRATE
     Indication: HYPERTONIC BLADDER
     Route: 048
     Dates: start: 20101123, end: 20140902
  7. INDOMETHACIN. [Concomitant]
     Active Substance: INDOMETHACIN
     Indication: ADVERSE EVENT
     Route: 048
     Dates: start: 20121203, end: 20141014
  8. ZYRTEC [Concomitant]
     Active Substance: CETIRIZINE HYDROCHLORIDE
     Indication: SEASONAL ALLERGY
     Route: 048
     Dates: start: 2005
  9. ALLOPURINOL. [Concomitant]
     Active Substance: ALLOPURINOL
     Indication: ADVERSE EVENT
     Route: 048
     Dates: start: 20140902, end: 20141014
  10. CANAGLIFLOZIN [Suspect]
     Active Substance: CANAGLIFLOZIN
     Indication: TYPE 2 DIABETES MELLITUS
     Dates: start: 20100601
  11. CILOSTAZOL. [Concomitant]
     Active Substance: CILOSTAZOL
     Indication: INTERMITTENT CLAUDICATION
     Route: 048
     Dates: start: 20110907, end: 20121210
  12. ALLOPURINOL. [Concomitant]
     Active Substance: ALLOPURINOL
     Indication: ADVERSE EVENT
     Route: 048
     Dates: start: 20141015
  13. CANAGLIFLOZIN [Suspect]
     Active Substance: CANAGLIFLOZIN
  14. FIORICET/CODEINE [Concomitant]
     Indication: SINUS HEADACHE
     Route: 048
     Dates: start: 2006
  15. BABY ASPIRIN [Concomitant]
     Active Substance: ASPIRIN
     Indication: CARDIOVASCULAR EVENT PROPHYLAXIS
     Route: 048
     Dates: start: 2005, end: 20110816
  16. TRIAMTERENE. [Concomitant]
     Active Substance: TRIAMTERENE
     Indication: HYPERTENSION
     Route: 048
     Dates: start: 2008
  17. HYDROCHLOROTHIAZIDE. [Concomitant]
     Active Substance: HYDROCHLOROTHIAZIDE
     Indication: HYPERTENSION
     Route: 048
     Dates: start: 20140527, end: 20140902
  18. PRAVASTATIN [Concomitant]
     Active Substance: PRAVASTATIN\PRAVASTATIN SODIUM
     Indication: HYPERLIPIDAEMIA
     Route: 048
     Dates: start: 20121001
  19. FLUTICASONE [Concomitant]
     Active Substance: FLUTICASONE\FLUTICASONE PROPIONATE
     Indication: SEASONAL ALLERGY
     Route: 048
     Dates: start: 2000
  20. METOPROLOL [Concomitant]
     Active Substance: METOPROLOL
     Indication: HYPERTENSION
     Route: 048
     Dates: start: 2007
  21. INDOMETHACIN. [Concomitant]
     Active Substance: INDOMETHACIN
     Indication: ADVERSE EVENT
     Route: 048
     Dates: start: 20141015

REACTIONS (1)
  - Breast cancer [Not Recovered/Not Resolved]

NARRATIVE: CASE EVENT DATE: 20150312
